FAERS Safety Report 7237810-1 (Version None)
Quarter: 2011Q1

REPORT INFORMATION
  Report Type: 
  Country: None (occurrence: None)
  Receive Date: 20110113
  Receipt Date: 20101227
  Transmission Date: 20110831
  Serious: Yes (Hospitalization)
  Sender: FDA-Public Use
  Company Number: 2009S1000439

PATIENT
  Age: 60 Year
  Sex: Female
  Weight: 48 kg

DRUGS (13)
  1. SENNA ALEXANDRINA [Concomitant]
  2. MUCOSOLVAN L [Concomitant]
  3. LIVALO [Suspect]
     Indication: ARTERIOSCLEROSIS OBLITERANS
     Dosage: ;BID;PO
     Route: 048
     Dates: start: 20090821, end: 20091215
  4. ASPIRIN [Concomitant]
  5. ALVESCO [Concomitant]
  6. LIVALO KOWA [Concomitant]
  7. MYONAL /01071502/ [Concomitant]
  8. HYPEN [Concomitant]
  9. AZEPTIN /00884002/ [Concomitant]
  10. LEAF [Concomitant]
  11. METHYCOBAL /00324901/ [Concomitant]
  12. GASLON N [Concomitant]
  13. TAKEPRON [Concomitant]

REACTIONS (10)
  - TROPONIN I INCREASED [None]
  - ELECTROCARDIOGRAM ST SEGMENT ELEVATION [None]
  - COLD SWEAT [None]
  - BLOOD PRESSURE DECREASED [None]
  - ANGINA UNSTABLE [None]
  - HEART RATE DECREASED [None]
  - CORONARY ARTERY STENOSIS [None]
  - BLOOD CREATINE PHOSPHOKINASE INCREASED [None]
  - DEPRESSED LEVEL OF CONSCIOUSNESS [None]
  - BLOOD CREATINE PHOSPHOKINASE MB INCREASED [None]
